FAERS Safety Report 10028511 (Version 1)
Quarter: 2014Q1

REPORT INFORMATION
  Report Type: Spontaneous
  Country: JP (occurrence: None)
  Receive Date: 20140310
  Receipt Date: 20140310
  Transmission Date: 20141002
  Serious: No
  Sender: FDA-Public Use
  Company Number: B0939488A

PATIENT
  Age: 37 Year
  Sex: Female

DRUGS (4)
  1. ROSUVASTATIN CALCIUM [Concomitant]
  2. IMIDAPRIL HYDROCHLORIDE [Concomitant]
  3. BEZAFIBRATE [Concomitant]
  4. PAROXETINE HYDROCHLORIDE [Suspect]
     Indication: PANIC DISORDER
     Route: 048
     Dates: start: 201102

REACTIONS (1)
  - Platelet count decreased [None]
